FAERS Safety Report 5918006-X (Version None)
Quarter: 2008Q4

REPORT INFORMATION
  Report Type: 
  Country: None (occurrence: None)
  Receive Date: 20081014
  Receipt Date: 20081003
  Transmission Date: 20090506
  Serious: Yes (Hospitalization)
  Sender: FDA-Public Use
  Company Number: US-PFIZER INC-2008083501

PATIENT
  Sex: Female
  Weight: 85 kg

DRUGS (2)
  1. GEODON [Suspect]
     Indication: BIPOLAR DISORDER
     Dosage: DAILY DOSE:60MG
     Dates: start: 20080701, end: 20080901
  2. CYMBALTA [Concomitant]

REACTIONS (6)
  - CHILLS [None]
  - CRYING [None]
  - DEPRESSED MOOD [None]
  - INTENTIONAL DRUG MISUSE [None]
  - MEMORY IMPAIRMENT [None]
  - NAUSEA [None]
